FAERS Safety Report 8589733-3 (Version None)
Quarter: 2012Q3

REPORT INFORMATION
  Report Type: 
  Country: None (occurrence: None)
  Receive Date: 20120813
  Receipt Date: 20120803
  Transmission Date: 20120928
  Serious: Yes (Death)
  Sender: FDA-Public Use
  Company Number: JP-SANOFI-AVENTIS-2012SA055500

PATIENT
  Age: 90 Year
  Sex: Male

DRUGS (3)
  1. OXALIPLATIN [Suspect]
     Indication: LARGE INTESTINE CARCINOMA
     Route: 041
     Dates: start: 20120726, end: 20120726
  2. FLUOROURACIL [Concomitant]
     Dates: start: 20120726, end: 20120728
  3. LEUCOVORIN CALCIUM [Concomitant]
     Dates: start: 20120726, end: 20120727

REACTIONS (3)
  - ACIDOSIS [None]
  - MYOCARDIAL INFARCTION [None]
  - RENAL TUBULAR NECROSIS [None]
